FAERS Safety Report 8312059-X (Version None)
Quarter: 2012Q2

REPORT INFORMATION
  Report Type: 
  Country: None (occurrence: None)
  Receive Date: 20120425
  Receipt Date: 20120416
  Transmission Date: 20120825
  Serious: Yes (Hospitalization, Other)
  Sender: FDA-Public Use
  Company Number: US-BAYER-2012-036991

PATIENT
  Age: 62 Year
  Sex: Female

DRUGS (7)
  1. LANTUS [Suspect]
     Indication: TYPE 2 DIABETES MELLITUS
  2. ASPIRIN [Interacting]
  3. SAXAGLIPTIN [Suspect]
     Indication: TYPE 2 DIABETES MELLITUS
  4. METFORMIN HCL [Suspect]
     Indication: TYPE 2 DIABETES MELLITUS
  5. PLAVIX [Interacting]
  6. NOVORAPID [Suspect]
     Indication: TYPE 2 DIABETES MELLITUS
  7. PLACEBO [Suspect]
     Indication: TYPE 2 DIABETES MELLITUS

REACTIONS (11)
  - HEPATIC LESION [None]
  - MELAENA [None]
  - HAEMATEMESIS [None]
  - UPPER GASTROINTESTINAL HAEMORRHAGE [None]
  - ASTHENIA [None]
  - HEPATIC NEOPLASM [None]
  - PYREXIA [None]
  - HAEMOGLOBIN DECREASED [None]
  - GENERAL PHYSICAL HEALTH DETERIORATION [None]
  - GAIT DISTURBANCE [None]
  - UNEVALUABLE EVENT [None]
